FAERS Safety Report 10389105 (Version 1)
Quarter: 2014Q3

REPORT INFORMATION
  Report Type: Spontaneous
  Country: JP (occurrence: JP)
  Receive Date: 20140817
  Receipt Date: 20140817
  Transmission Date: 20150326
  Serious: Yes (Hospitalization)
  Sender: FDA-Public Use
  Company Number: PHHY2011JP122204

PATIENT

DRUGS (2)
  1. EXJADE [Suspect]
     Active Substance: DEFERASIROX
     Dosage: UNK
  2. EXJADE [Suspect]
     Active Substance: DEFERASIROX
     Dosage: UNK
     Dates: end: 20131126

REACTIONS (1)
  - Disease progression [Unknown]
